FAERS Safety Report 13515139 (Version 6)
Quarter: 2020Q2

REPORT INFORMATION
  Report Type: Report from Study
  Country: None (occurrence: FR)
  Receive Date: 20170504
  Receipt Date: 20200630
  Transmission Date: 20200713
  Serious: Yes (Death, Congenital Anomaly, Other)
  Sender: FDA-Public Use
  Company Number: FR-ABBVIE-17P-056-1961110-00

PATIENT
  Sex: Male
  Weight: .55 kg

DRUGS (3)
  1. TRUVADA [Suspect]
     Active Substance: EMTRICITABINE\TENOFOVIR DISOPROXIL FUMARATE
     Indication: MATERNAL EXPOSURE TIMING UNSPECIFIED
     Route: 064
  2. NORVIR [Suspect]
     Active Substance: RITONAVIR
     Indication: MATERNAL EXPOSURE TIMING UNSPECIFIED
     Route: 064
  3. REYATAZ [Suspect]
     Active Substance: ATAZANAVIR SULFATE
     Indication: MATERNAL EXPOSURE TIMING UNSPECIFIED
     Route: 064

REACTIONS (13)
  - Persistent left superior vena cava [Unknown]
  - Ventricular hypoplasia [Unknown]
  - Foetal exposure during pregnancy [Recovered/Resolved]
  - Transposition of the great vessels [Unknown]
  - Ventricular septal defect [Unknown]
  - Right aortic arch [Unknown]
  - Aberrant aortic arch [Unknown]
  - Premature baby [Unknown]
  - Single umbilical artery [Unknown]
  - Heterotaxia [Fatal]
  - Cardiomyopathy [Fatal]
  - Anomalous pulmonary venous connection [Unknown]
  - Pulmonary malformation [Unknown]

NARRATIVE: CASE EVENT DATE: 201303
